FAERS Safety Report 10627091 (Version 1)
Quarter: 2014Q4

REPORT INFORMATION
  Report Type: Other
  Country: KR (occurrence: KR)
  Receive Date: 20141204
  Receipt Date: 20141204
  Transmission Date: 20150529
  Serious: Yes (Other)
  Sender: FDA-Public Use
  Company Number: KR-BRISTOL-MYERS SQUIBB COMPANY-21670179

PATIENT
  Age: 36 Year
  Sex: Female

DRUGS (3)
  1. MITOMYCIN C [Suspect]
     Active Substance: MITOMYCIN
     Indication: CERVIX CARCINOMA
     Dates: start: 201208
  2. VINCRISTINE [Suspect]
     Active Substance: VINCRISTINE
     Indication: CERVIX CARCINOMA
     Dates: start: 201208
  3. CISPLATIN. [Suspect]
     Active Substance: CISPLATIN
     Indication: CERVIX CARCINOMA
     Dates: start: 201208

REACTIONS (1)
  - Haemolytic uraemic syndrome [Unknown]
